FAERS Safety Report 8353419-0 (Version None)
Quarter: 2012Q2

REPORT INFORMATION
  Report Type: 
  Country: None (occurrence: None)
  Receive Date: 20120511
  Receipt Date: 20120205
  Transmission Date: 20120825
  Serious: No
  Sender: FDA-Public Use
  Company Number: US-GLAXOSMITHKLINE-A0813164A

PATIENT
  Sex: Female

DRUGS (9)
  1. ONDANSETRON [Concomitant]
  2. AMBIEN [Concomitant]
  3. TYKERB [Suspect]
     Indication: BREAST CANCER METASTATIC
     Dosage: 250MG PER DAY
     Route: 048
     Dates: start: 20090919
  4. HERCEPTIN [Suspect]
  5. LISINOPRIL [Concomitant]
  6. TOPROL-XL [Concomitant]
  7. EFFEXOR [Concomitant]
  8. ZOMETA [Concomitant]
  9. XELODA [Suspect]
     Dates: end: 20111101

REACTIONS (4)
  - DIARRHOEA [None]
  - FATIGUE [None]
  - NAUSEA [None]
  - RASH [None]
